FAERS Safety Report 10375461 (Version 1)
Quarter: 2014Q3

REPORT INFORMATION
  Report Type: Spontaneous
  Country: CA (occurrence: None)
  Receive Date: 20140806
  Receipt Date: 20140806
  Transmission Date: 20150326
  Serious: Yes (Other)
  Sender: FDA-Public Use
  Company Number: BD-2014-0050

PATIENT
  Age: 51 Year

DRUGS (12)
  1. CHONDROITIN [Concomitant]
     Active Substance: CHONDROITIN SULFATE (CHICKEN)
  2. ROCURONIUM [Concomitant]
     Active Substance: ROCURONIUM BROMIDE
  3. PROPOFOL. [Concomitant]
     Active Substance: PROPOFOL
  4. MIDAZOLAM [Concomitant]
     Active Substance: MIDAZOLAM\MIDAZOLAM HYDROCHLORIDE
  5. GLUCOSAMINE [Concomitant]
     Active Substance: GLUCOSAMINE
  6. GLYCOPYRROLATE /00196201/ (GLYCOPYRRONIUM) [Concomitant]
  7. ONDANSETRON [Suspect]
     Active Substance: ONDANSETRON
     Indication: PROPHYLAXIS OF NAUSEA AND VOMITING
     Route: 042
  8. MULTIVITAMIN /00097801/ (ASCORBIC ACID, CALCIUM PANTOTHENATE, ERGOCALCIFEROL, NICOTINAMIDE, PYRIDOXINE HYDROCHLORIDE, RETINOL, RIBOFLAVIN, THIAMINE HYDROCHLORIDE) [Concomitant]
  9. ISOFLURANE. [Concomitant]
     Active Substance: ISOFLURANE
  10. FENTANYL. [Concomitant]
     Active Substance: FENTANYL
  11. ATORVASTATIN [Concomitant]
     Active Substance: ATORVASTATIN
  12. CEFAZOLIN [Concomitant]
     Active Substance: CEFAZOLIN

REACTIONS (4)
  - Atrial fibrillation [None]
  - Heart alternation [None]
  - Arteriospasm coronary [None]
  - Electrocardiogram ST segment elevation [None]
